FAERS Safety Report 9824916 (Version 1)
Quarter: 2014Q1

REPORT INFORMATION
  Report Type: Spontaneous
  Country: US (occurrence: US)
  Receive Date: 20140117
  Receipt Date: 20140117
  Transmission Date: 20141002
  Serious: Yes (Other)
  Sender: FDA-Public Use
  Company Number: US-BRISTOL-MYERS SQUIBB COMPANY-19991397

PATIENT
  Age: 69 Year
  Sex: Male

DRUGS (11)
  1. WARFARIN SODIUM [Suspect]
  2. SYMBICORT [Concomitant]
  3. GLYBURIDE [Concomitant]
  4. TERAZOSIN [Concomitant]
  5. METFORMIN [Concomitant]
  6. LANTUS [Concomitant]
  7. BYETTA [Concomitant]
  8. BENICAR [Concomitant]
  9. POTASSIUM [Concomitant]
  10. FUROSEMIDE [Concomitant]
  11. VITAMINS [Concomitant]

REACTIONS (2)
  - Leukaemia [Unknown]
  - International normalised ratio abnormal [Unknown]
